FAERS Safety Report 8593253-X (Version None)
Quarter: 2012Q3

REPORT INFORMATION
  Report Type: 
  Country: None (occurrence: None)
  Receive Date: 20120814
  Receipt Date: 20120808
  Transmission Date: 20120928
  Serious: Yes (Other)
  Sender: FDA-Public Use
  Company Number: US-BAYER-2012-081805

PATIENT
  Age: 55 Year
  Sex: Female
  Weight: 63 kg

DRUGS (2)
  1. CALCIUM WITH VITAMIN D [Concomitant]
     Dosage: UNK UNK, BID
  2. ALEVE (CAPLET) [Suspect]
     Dosage: 1 UNK, UNK
     Route: 048
     Dates: start: 20120802

REACTIONS (1)
  - CHOKING [None]
